FAERS Safety Report 8342066 (Version 3)
Quarter: 2013Q3

REPORT INFORMATION
  Report Type: Spontaneous
  Country: FR (occurrence: FR)
  Receive Date: 20120118
  Receipt Date: 20130826
  Transmission Date: 20140515
  Serious: Yes (Hospitalization)
  Sender: FDA-Public Use
  Company Number: FR-PFIZER INC-2012010057

PATIENT
  Age: 49 Year
  Sex: Male

DRUGS (9)
  1. TAZOCILLINE [Suspect]
     Dosage: 4 G, 3X/DAY
     Route: 042
     Dates: start: 20110517, end: 20110605
  2. TARGOCID [Suspect]
     Dosage: 450 MG, 3X/DAY
     Route: 042
     Dates: start: 20110517, end: 20110605
  3. OFLOCET [Suspect]
     Dosage: 200 MG, 2X/DAY
     Route: 048
     Dates: start: 20110517, end: 20110605
  4. LOVENOX [Suspect]
     Dosage: 4000 IU, DAILY
     Route: 058
     Dates: start: 20110505, end: 20110601
  5. NOVORAPID [Concomitant]
     Dosage: 57 IU,DAILY
     Route: 058
  6. LANTUS [Concomitant]
     Dosage: 35 IU, DAILY
     Route: 058
  7. TAHOR [Concomitant]
     Dosage: 10 MG, DAILY
     Route: 048
  8. KARDEGIC [Concomitant]
     Dosage: 75 MG, DAILY
     Route: 048
  9. GAVISCON [Concomitant]
     Dosage: 1 DF, 3X/DAY
     Route: 048

REACTIONS (2)
  - Drug reaction with eosinophilia and systemic symptoms [Recovered/Resolved]
  - Skin test negative [Unknown]
